FAERS Safety Report 24962679 (Version 1)
Quarter: 2025Q1

REPORT INFORMATION
  Report Type: Report from Study
  Country: DE (occurrence: DE)
  Receive Date: 20250212
  Receipt Date: 20250212
  Transmission Date: 20250409
  Serious: Yes (Hospitalization, Other)
  Sender: ABBVIE
  Company Number: DE-ABBVIE-6065189

PATIENT
  Age: 73 Year
  Sex: Male

DRUGS (3)
  1. CARBIDOPA\LEVODOPA [Suspect]
     Active Substance: CARBIDOPA\LEVODOPA
     Indication: Parkinson^s disease
     Route: 050
     Dates: start: 20240819
  2. CARBIDOPA\LEVODOPA [Suspect]
     Active Substance: CARBIDOPA\LEVODOPA
     Indication: Parkinsonism
     Route: 050
     Dates: start: 20240819
  3. CARBIDOPA\LEVODOPA [Suspect]
     Active Substance: CARBIDOPA\LEVODOPA
     Route: 050
     Dates: start: 20240819

REACTIONS (28)
  - Confusional state [Recovering/Resolving]
  - Hallucination [Not Recovered/Not Resolved]
  - Musculoskeletal disorder [Not Recovered/Not Resolved]
  - Clostridium test positive [Unknown]
  - Hallucination, auditory [Not Recovered/Not Resolved]
  - Dysphagia [Recovering/Resolving]
  - Diarrhoea [Recovered/Resolved]
  - Cognitive disorder [Unknown]
  - Disorientation [Recovering/Resolving]
  - Weight decreased [Not Recovered/Not Resolved]
  - Dementia [Not Recovered/Not Resolved]
  - General physical health deterioration [Not Recovered/Not Resolved]
  - Motor dysfunction [Unknown]
  - General symptom [Unknown]
  - Parkinson^s disease [Unknown]
  - Benign prostatic hyperplasia [Unknown]
  - Osteoporosis [Unknown]
  - Spinal fusion surgery [Unknown]
  - Vascular dementia [Unknown]
  - Sinus arrest [Unknown]
  - Postoperative thoracic procedure complication [Unknown]
  - Microembolism [Unknown]
  - Hypertension [Unknown]
  - Dyslipidaemia [Unknown]
  - Hypochromic anaemia [Unknown]
  - Dysarthria [Unknown]
  - Apraxia [Not Recovered/Not Resolved]
  - Oropharyngeal discomfort [Unknown]

NARRATIVE: CASE EVENT DATE: 20240101
